FAERS Safety Report 25736948 (Version 1)
Quarter: 2025Q3

REPORT INFORMATION
  Report Type: Spontaneous
  Country: CA (occurrence: CA)
  Receive Date: 20250828
  Receipt Date: 20250828
  Transmission Date: 20251020
  Serious: Yes (Other)
  Sender: PFIZER
  Company Number: CA-PFIZER INC-202200611053

PATIENT
  Age: 4 Year
  Sex: Female

DRUGS (5)
  1. SOMATROPIN [Suspect]
     Active Substance: SOMATROPIN
     Indication: Prader-Willi syndrome
     Route: 058
     Dates: start: 20220421, end: 2023
  2. SOMATROPIN [Suspect]
     Active Substance: SOMATROPIN
     Route: 058
     Dates: start: 2023
  3. SOMATROPIN [Suspect]
     Active Substance: SOMATROPIN
     Route: 058
  4. SOMATROPIN [Suspect]
     Active Substance: SOMATROPIN
     Route: 058
  5. CHOLECALCIFEROL [Concomitant]
     Active Substance: CHOLECALCIFEROL

REACTIONS (2)
  - Adenoidectomy [Unknown]
  - Headache [Unknown]

NARRATIVE: CASE EVENT DATE: 20250101
